FAERS Safety Report 12356256 (Version 1)
Quarter: 2016Q2

REPORT INFORMATION
  Report Type: Spontaneous
  Country: US (occurrence: US)
  Receive Date: 20160511
  Receipt Date: 20160511
  Transmission Date: 20160815
  Serious: No
  Sender: FDA-Public Use
  Company Number: US-MDT-ADR-2015-02442

PATIENT
  Age: 84 Year
  Sex: Female

DRUGS (3)
  1. FENTANYL. [Suspect]
     Active Substance: FENTANYL
     Route: 037
  2. BACLOFEN. [Suspect]
     Active Substance: BACLOFEN
     Route: 037
  3. DILAUDID [Suspect]
     Active Substance: HYDROMORPHONE HYDROCHLORIDE
     Route: 037

REACTIONS (4)
  - Pain [Unknown]
  - Skin disorder [Unknown]
  - Hypersomnia [Unknown]
  - Hyperaesthesia [Unknown]
